FAERS Safety Report 6128282-9 (Version None)
Quarter: 2009Q1

REPORT INFORMATION
  Report Type: 
  Country: None (occurrence: None)
  Receive Date: 20090323
  Receipt Date: 20090313
  Transmission Date: 20090719
  Serious: Yes (Other)
  Sender: FDA-Public Use
  Company Number: B0566102A

PATIENT
  Age: 51 Year
  Sex: Female

DRUGS (9)
  1. ORLISTAT [Suspect]
  2. GLICLAZIDE [Concomitant]
  3. METFORMIN [Concomitant]
  4. METFORMIN [Concomitant]
  5. WARFARIN SODIUM [Concomitant]
  6. ATORVASTATIN [Concomitant]
  7. CARVEDILOL [Concomitant]
  8. FRUSEMIDE [Concomitant]
  9. ENALAPRIL [Concomitant]

REACTIONS (5)
  - DIARRHOEA [None]
  - GLOMERULAR FILTRATION RATE ABNORMAL [None]
  - HYPOTENSION [None]
  - RENAL FAILURE ACUTE [None]
  - RENAL IMPAIRMENT [None]
